FAERS Safety Report 8150735 (Version 3)
Quarter: 2013Q3

REPORT INFORMATION
  Report Type: Spontaneous
  Country: US (occurrence: US)
  Receive Date: 20110922
  Receipt Date: 20130911
  Transmission Date: 20140515
  Serious: Yes (Other)
  Sender: FDA-Public Use
  Company Number: US-ASTRAZENECA-2011SE12699

PATIENT
  Age: 57 Year
  Sex: Female

DRUGS (15)
  1. SEROQUEL [Suspect]
     Route: 048
     Dates: start: 20050126
  2. STEROID [Concomitant]
  3. SYNVISC [Concomitant]
  4. SIMVASTATIN [Concomitant]
     Indication: PAIN
     Dates: start: 20130203
  5. VIOXX [Concomitant]
  6. CYMBALTA [Concomitant]
     Indication: NEUROPATHY PERIPHERAL
     Dates: start: 20130302
  7. FENOFIBRATE [Concomitant]
     Route: 048
     Dates: start: 20130225
  8. JANUMET [Concomitant]
     Dosage: 50 TO 1000 M  1 TAB TWO TIMES DAILY
     Route: 048
     Dates: start: 20130302
  9. MELOXICAM [Concomitant]
  10. MICARDIS HCT [Concomitant]
     Dosage: 40- 12.5 MG ONE TIME DAILY
     Dates: start: 20130302
  11. OMEPRAZOLE [Concomitant]
     Indication: GASTROOESOPHAGEAL REFLUX DISEASE
     Dates: start: 20120902
  12. METOPROLOL SUCCINATE [Concomitant]
     Indication: CARDIAC DISORDER
     Dates: start: 20130203
  13. METOPROLOL SUCCINATE [Concomitant]
     Indication: BLOOD PRESSURE
     Dates: start: 20130203
  14. TRAMADOL [Concomitant]
     Indication: PAIN
     Dates: start: 20130103
  15. TRAZADONE [Concomitant]
     Dates: start: 20130302

REACTIONS (4)
  - Pancreatitis [Unknown]
  - Diabetic coma [Unknown]
  - Neuropathy peripheral [Unknown]
  - Type 2 diabetes mellitus [Unknown]
